FAERS Safety Report 17067058 (Version 1)
Quarter: 2019Q4

REPORT INFORMATION
  Report Type: Report from Study
  Country: US (occurrence: US)
  Receive Date: 20191122
  Receipt Date: 20191122
  Transmission Date: 20200122
  Serious: Yes (Hospitalization)
  Sender: FDA-Public Use
  Company Number: NVSC2019US042949

PATIENT
  Age: 24 Year
  Sex: Female

DRUGS (1)
  1. ILARIS [Suspect]
     Active Substance: CANAKINUMAB
     Indication: CRYOPYRIN ASSOCIATED PERIODIC SYNDROME
     Dosage: 150 MG (Q6W)
     Route: 058
     Dates: start: 20160127

REACTIONS (3)
  - Inflammation [Unknown]
  - Cholelithiasis [Unknown]
  - Oesophageal infection [Unknown]

NARRATIVE: CASE EVENT DATE: 20191007
